FAERS Safety Report 16260461 (Version 2)
Quarter: 2019Q2

REPORT INFORMATION
  Report Type: Spontaneous
  Country: KR (occurrence: KR)
  Receive Date: 20190501
  Receipt Date: 20190503
  Transmission Date: 20190711
  Serious: Yes (Death, Other)
  Sender: FDA-Public Use
  Company Number: KR-AMGEN-KORSP2019067799

PATIENT

DRUGS (3)
  1. KYPROLIS [Suspect]
     Active Substance: CARFILZOMIB
     Indication: PLASMA CELL MYELOMA
     Dosage: 20 MILLIGRAM/SQ. METER (D1, 2 FOR CYCLE 1)
     Route: 065
  2. DEXAMETHASONE. [Concomitant]
     Active Substance: DEXAMETHASONE
     Indication: PLASMA CELL MYELOMA
     Dosage: 40 MILLIGRAM (D1,8,15,22) EVERY 4 WEEKS)
  3. KYPROLIS [Suspect]
     Active Substance: CARFILZOMIB
     Dosage: 56 MILLIGRAM/SQ. METER (D8,9,15,16 FOR CYCLE 1, AND THEN, D1,2,8,9,15,16)
     Route: 065

REACTIONS (23)
  - Myocardial ischaemia [Unknown]
  - Pulmonary oedema [Unknown]
  - Fatigue [Unknown]
  - Upper respiratory tract infection [Unknown]
  - Muscle spasms [Unknown]
  - Thrombocytopenia [Unknown]
  - Acute kidney injury [Unknown]
  - Hypertension [Unknown]
  - Infection [Fatal]
  - Febrile neutropenia [Unknown]
  - Dyspnoea [Unknown]
  - Plasma cell myeloma [Fatal]
  - Death [Fatal]
  - Neutropenia [Unknown]
  - Pyrexia [Unknown]
  - Multiple organ dysfunction syndrome [Fatal]
  - Tumour lysis syndrome [Fatal]
  - Cardiac failure congestive [Unknown]
  - Hepatic enzyme abnormal [Unknown]
  - Diarrhoea [Unknown]
  - Therapy non-responder [Unknown]
  - Anaemia [Unknown]
  - Cough [Unknown]
